FAERS Safety Report 4478859-1 (Version None)
Quarter: 2004Q4

REPORT INFORMATION
  Report Type: 
  Country: None (occurrence: None)
  Receive Date: 20041014
  Receipt Date: 20041008
  Transmission Date: 20050328
  Serious: Yes (Life-Threatening, Hospitalization, Disabling)
  Sender: FDA-Public Use
  Company Number: DEWYE608027FEB04

PATIENT
  Age: 58 Year
  Sex: Male

DRUGS (14)
  1. RAPAMUNE [Suspect]
     Indication: PROPHYLAXIS AGAINST TRANSPLANT REJECTION
     Dosage: SEE IMAGE
     Route: 048
     Dates: start: 20020524, end: 20020603
  2. RAPAMUNE [Suspect]
     Indication: PROPHYLAXIS AGAINST TRANSPLANT REJECTION
     Dosage: SEE IMAGE
     Route: 048
     Dates: start: 20020603, end: 20020606
  3. RAPAMUNE [Suspect]
     Indication: PROPHYLAXIS AGAINST TRANSPLANT REJECTION
     Dosage: SEE IMAGE
     Route: 048
     Dates: start: 20020821
  4. PROGRAF [Concomitant]
  5. PROGRAF [Concomitant]
  6. PROGRAF [Concomitant]
  7. PROGRAF [Concomitant]
  8. CELLCEPT [Concomitant]
  9. PREDNISOLONE [Concomitant]
  10. PREDNISOLONE [Concomitant]
  11. NORVASC [Concomitant]
  12. INSULIN [Concomitant]
  13. KEPINOL (SULFAMETHOXAZOLE/TRIMETHOPRIM) [Concomitant]
  14. CYNT (MOXONIDINE) [Concomitant]

REACTIONS (5)
  - BLOOD CREATININE INCREASED [None]
  - BLOOD UREA INCREASED [None]
  - CREATININE RENAL CLEARANCE DECREASED [None]
  - DIALYSIS [None]
  - KIDNEY TRANSPLANT REJECTION [None]
